FAERS Safety Report 4499982-1 (Version None)
Quarter: 2004Q4

REPORT INFORMATION
  Report Type: 
  Country: None (occurrence: None)
  Receive Date: 20041112
  Receipt Date: 20041027
  Transmission Date: 20050328
  Serious: Yes (Hospitalization)
  Sender: FDA-Public Use
  Company Number: PHBS2004JP14383

PATIENT
  Age: 38 Year
  Sex: Female

DRUGS (3)
  1. SANOREX [Suspect]
     Indication: OBESITY
     Route: 048
     Dates: start: 20030819, end: 20031002
  2. ANTIHYPERTENSIVES [Concomitant]
     Indication: HYPERTENSION
  3. TURMERIC [Suspect]
     Dates: start: 20030922

REACTIONS (11)
  - ALANINE AMINOTRANSFERASE INCREASED [None]
  - ASPARTATE AMINOTRANSFERASE INCREASED [None]
  - BIOPSY LIVER ABNORMAL [None]
  - BLOOD ALKALINE PHOSPHATASE INCREASED [None]
  - BLOOD BILIRUBIN INCREASED [None]
  - GAMMA-GLUTAMYLTRANSFERASE INCREASED [None]
  - HEPATIC FIBROSIS [None]
  - HEPATIC NECROSIS [None]
  - JAUNDICE [None]
  - LIVER DISORDER [None]
  - NAUSEA [None]
